FAERS Safety Report 21016459 (Version 1)
Quarter: 2022Q2

REPORT INFORMATION
  Report Type: Spontaneous
  Country: US (occurrence: None)
  Receive Date: 20220627
  Receipt Date: 20220627
  Transmission Date: 20220720
  Serious: Yes (Hospitalization)
  Sender: FDA-Public Use
  Company Number: None

PATIENT
  Age: 91 Year
  Sex: Male
  Weight: 79.83 kg

DRUGS (1)
  1. CIPROFLOXACIN [Suspect]
     Active Substance: CIPROFLOXACIN
     Indication: Urinary tract infection
     Dates: start: 20220207, end: 20220217

REACTIONS (4)
  - Diarrhoea [None]
  - Klebsiella test positive [None]
  - Sepsis [None]
  - Culture urine positive [None]

NARRATIVE: CASE EVENT DATE: 20220303
